FAERS Safety Report 18412603 (Version 1)
Quarter: 2020Q4

REPORT INFORMATION
  Report Type: Spontaneous
  Country: US (occurrence: US)
  Receive Date: 20201021
  Receipt Date: 20201021
  Transmission Date: 20210114
  Serious: No
  Sender: FDA-Public Use
  Company Number: US-009507513-2010USA003028

PATIENT
  Sex: Female

DRUGS (2)
  1. ZESTRIL [Suspect]
     Active Substance: LISINOPRIL
     Dosage: UNK,
  2. PRINIVIL [Suspect]
     Active Substance: LISINOPRIL
     Dosage: UNK, ONCE DAILY
     Route: 048

REACTIONS (2)
  - Blood pressure abnormal [Unknown]
  - Gastrointestinal disorder [Unknown]
